FAERS Safety Report 10041366 (Version 1)
Quarter: 2014Q1

REPORT INFORMATION
  Report Type: Spontaneous
  Country: DE (occurrence: DE)
  Receive Date: 20140327
  Receipt Date: 20140327
  Transmission Date: 20141002
  Serious: Yes (Hospitalization)
  Sender: FDA-Public Use
  Company Number: DE-ACTAVIS-2014-05436

PATIENT
  Age: 49 Year
  Sex: Male
  Weight: 108 kg

DRUGS (5)
  1. GABAPENTIN (UNKNOWN) [Suspect]
     Indication: POLYNEUROPATHY
     Dosage: 600 MG, DAILY
     Route: 048
     Dates: end: 20140119
  2. SIMVASTATIN [Concomitant]
     Indication: HYPERCHOLESTEROLAEMIA
     Dosage: 20 MG, DAILY
     Route: 048
     Dates: start: 201308, end: 20140119
  3. JANUMET [Concomitant]
     Indication: TYPE 2 DIABETES MELLITUS
     Dosage: 50/1000, 1-0-1
     Route: 048
     Dates: start: 201308, end: 20140119
  4. LEVEMIR [Concomitant]
     Indication: TYPE 2 DIABETES MELLITUS
     Dosage: 48 IU, DAILY
     Route: 058
     Dates: start: 201308
  5. ACTRAPID [Concomitant]
     Indication: TYPE 2 DIABETES MELLITUS
     Dosage: UNK
     Route: 058
     Dates: start: 201308

REACTIONS (3)
  - Drug-induced liver injury [Not Recovered/Not Resolved]
  - Liver function test abnormal [Not Recovered/Not Resolved]
  - Ocular icterus [Not Recovered/Not Resolved]
